FAERS Safety Report 5281326-9 (Version None)
Quarter: 2007Q1

REPORT INFORMATION
  Report Type: 
  Country: None (occurrence: None)
  Receive Date: 20070326
  Receipt Date: 20070313
  Transmission Date: 20070707
  Serious: Yes (Other)
  Sender: FDA-Public Use
  Company Number: 238561

PATIENT
  Age: 2 Year
  Sex: Male
  Weight: 2 kg

DRUGS (4)
  1. RITUXAN [Suspect]
     Indication: PEMPHIGOID
     Dosage: 375 MG/M2, 1/WEEK, INTRAVENOUS
     Route: 042
  2. MYCOPHENOLATE MOFETIL [Concomitant]
  3. PREDNISOLONE [Concomitant]
  4. DAPSONE [Concomitant]

REACTIONS (7)
  - HERPES SEPSIS [None]
  - HERPES ZOSTER [None]
  - HYPOGAMMAGLOBULINAEMIA [None]
  - INTESTINAL FUNCTIONAL DISORDER [None]
  - LUNG DISORDER [None]
  - MENINGEAL DISORDER [None]
  - PNEUMONIA PARAINFLUENZAE VIRAL [None]
